FAERS Safety Report 8363396-4 (Version None)
Quarter: 2012Q1

REPORT INFORMATION
  Report Type: 
  Country: None (occurrence: None)
  Receive Date: 20120323
  Receipt Date: 20110516
  Transmission Date: 20120608
  Serious: Yes (Hospitalization)
  Sender: FDA-Public Use
  Company Number: 163-21880-11052145

PATIENT
  Age: 65 Year
  Sex: Male

DRUGS (1)
  1. REVLIMID [Suspect]
     Indication: MULTIPLE MYELOMA
     Dosage: 25 MG, 1 IN 1 D, PO
     Route: 048
     Dates: start: 20091230

REACTIONS (5)
  - PLATELET COUNT DECREASED [None]
  - BRONCHITIS [None]
  - SINUSITIS [None]
  - PYREXIA [None]
  - INFUSION SITE INFECTION [None]
